FAERS Safety Report 11385930 (Version 2)
Quarter: 2015Q4

REPORT INFORMATION
  Report Type: Spontaneous
  Country: FR (occurrence: FR)
  Receive Date: 20150817
  Receipt Date: 20151122
  Transmission Date: 20160304
  Serious: Yes (Life-Threatening, Hospitalization)
  Sender: FDA-Public Use
  Company Number: FR-HOSPIRA-2972166

PATIENT
  Age: 41 Year
  Sex: Male

DRUGS (14)
  1. IFOSFAMIDE. [Suspect]
     Active Substance: IFOSFAMIDE
     Indication: TESTICULAR GERM CELL TUMOUR
     Dosage: 1 WEEK, D2 TO D5
     Route: 042
     Dates: start: 20150630, end: 20150702
  2. METRONIDAZOLE. [Concomitant]
     Active Substance: METRONIDAZOLE
     Indication: DRUG THERAPY
     Dates: start: 20150702
  3. XANAX [Concomitant]
     Active Substance: ALPRAZOLAM
     Indication: PRODUCT USED FOR UNKNOWN INDICATION
  4. UROMITEXAN [Suspect]
     Active Substance: MESNA
     Indication: TESTICULAR GERM CELL TUMOUR
     Dosage: 890 MG 3 TIMES PER DAY, D2 TO D5
     Route: 042
     Dates: start: 20150630, end: 20150702
  5. METHYLPREDNISOLONE MYLAN           /00049602/ [Concomitant]
     Active Substance: METHYLPREDNISOLONE SODIUM SUCCINATE
     Indication: PREMEDICATION
     Dosage: D1 TO D5
     Route: 042
     Dates: start: 20150625, end: 20150702
  6. ONDANSETRON ACCORD [Concomitant]
     Active Substance: ONDANSETRON
     Indication: PREMEDICATION
     Dosage: 1 CYCLE, D1 TO D5
     Route: 042
     Dates: start: 20150629, end: 20150702
  7. EMEND [Concomitant]
     Active Substance: APREPITANT
     Indication: PREMEDICATION
     Dosage: 1 CYCLE, D1 TO D3
     Route: 048
     Dates: start: 20150629, end: 20150701
  8. CEFTRIAXONE. [Concomitant]
     Active Substance: CEFTRIAXONE
     Indication: DRUG THERAPY
     Dates: start: 20150702
  9. AZANTAC [Concomitant]
     Active Substance: RANITIDINE HYDROCHLORIDE
     Indication: PREMEDICATION
     Dosage: 1 CYCLE, D1
     Route: 042
     Dates: start: 20150629, end: 20150702
  10. CISPLATINE MYLAN [Suspect]
     Active Substance: CISPLATIN
     Indication: TESTICULAR GERM CELL TUMOUR
     Dosage: 1 CYCLE, D2 TO D5
     Route: 042
     Dates: start: 20150630, end: 20150702
  11. INNOHEP [Concomitant]
     Active Substance: TINZAPARIN SODIUM
     Indication: PRODUCT USED FOR UNKNOWN INDICATION
  12. PACLITAXEL HOSPIRA [Suspect]
     Active Substance: PACLITAXEL
     Indication: TESTICULAR GERM CELL TUMOUR
     Dosage: C1D1, ONE COURSE EVERY 15 DAYS
     Route: 042
     Dates: start: 20150629, end: 20150629
  13. POLARAMINE [Concomitant]
     Active Substance: DEXCHLORPHENIRAMINE MALEATE
     Indication: PREMEDICATION
     Dosage: D1
     Route: 042
     Dates: start: 20150629, end: 20150702
  14. NEXIUM [Concomitant]
     Active Substance: ESOMEPRAZOLE MAGNESIUM
     Indication: PRODUCT USED FOR UNKNOWN INDICATION

REACTIONS (5)
  - Aplasia [Recovered/Resolved]
  - Pancytopenia [Recovered/Resolved]
  - Fanconi syndrome [Recovered/Resolved]
  - Septic shock [Recovered/Resolved]
  - Hypotension [Recovered/Resolved]

NARRATIVE: CASE EVENT DATE: 20150704
